FAERS Safety Report 9719440 (Version 2)
Quarter: 2017Q2

REPORT INFORMATION
  Report Type: Report from Study
  Country: DE (occurrence: DE)
  Receive Date: 20131128
  Receipt Date: 20170606
  Transmission Date: 20170830
  Serious: Yes (Death, Other)
  Sender: FDA-Public Use
  Company Number: DE-ROCHE-1307941

PATIENT
  Age: 77 Year
  Sex: Female

DRUGS (2)
  1. RANIBIZUMAB [Suspect]
     Active Substance: RANIBIZUMAB
     Indication: DIABETIC RETINAL OEDEMA
     Dosage: LEFT EYE
     Route: 050
     Dates: start: 20120712
  2. RANIBIZUMAB [Suspect]
     Active Substance: RANIBIZUMAB
     Indication: VISUAL IMPAIRMENT
     Dosage: LEFT EYE, THE LAST DOSE OF RANIBIZUMAB WAS ON 12/JUL/2012.
     Route: 050
     Dates: start: 20110321

REACTIONS (6)
  - Glycosylated haemoglobin increased [Unknown]
  - Retinal oedema [Unknown]
  - Retinal cyst [Unknown]
  - Visual acuity reduced [Unknown]
  - Cardiac failure [Fatal]
  - Metamorphopsia [Unknown]

NARRATIVE: CASE EVENT DATE: 201203
